FAERS Safety Report 9147713 (Version 2)
Quarter: 2013Q2

REPORT INFORMATION
  Report Type: Spontaneous
  Country: JP (occurrence: JP)
  Receive Date: 20130307
  Receipt Date: 20130520
  Transmission Date: 20140414
  Serious: Yes (Hospitalization, Other)
  Sender: FDA-Public Use
  Company Number: JP-PFIZER INC-2013079435

PATIENT
  Age: 68 Year
  Sex: Female
  Weight: 48 kg

DRUGS (7)
  1. LYRICA [Suspect]
     Indication: PAIN IN EXTREMITY
     Dosage: 75 MG, 2X/DAY
     Route: 048
     Dates: start: 20130107, end: 20130129
  2. EPADEL S [Concomitant]
     Indication: PERIPHERAL ARTERIAL OCCLUSIVE DISEASE
     Dosage: 900 MG, 2X/DAY
     Route: 048
     Dates: start: 20121025
  3. PLETAAL [Concomitant]
     Indication: PERIPHERAL ARTERIAL OCCLUSIVE DISEASE
     Dosage: 100 MG, 2X/DAY
     Route: 048
     Dates: start: 20121029, end: 20130129
  4. SARPOGRELATE [Concomitant]
     Indication: PERIPHERAL ARTERIAL OCCLUSIVE DISEASE
     Dosage: 100 MG, 3X/DAY
     Route: 048
     Dates: start: 20121105
  5. PRODONER [Concomitant]
     Indication: PERIPHERAL ARTERIAL OCCLUSIVE DISEASE
     Dosage: 20 MG, 6X/DAY
     Route: 048
     Dates: start: 20121122, end: 20130107
  6. ETIZOLAM [Concomitant]
     Indication: INSOMNIA
     Dosage: 0.5 MG, 1X/DAY
     Route: 048
     Dates: start: 20121208
  7. CALONAL [Concomitant]
     Indication: PAIN
     Dosage: 400 MG, 3X/DAY
     Route: 048
     Dates: start: 20130107

REACTIONS (3)
  - Cardiac failure [Recovered/Resolved]
  - Long QT syndrome [Recovered/Resolved]
  - Torsade de pointes [Recovered/Resolved]
